FAERS Safety Report 8840157 (Version 2)
Quarter: 2012Q4

REPORT INFORMATION
  Report Type: Report from Study
  Country: CA (occurrence: CA)
  Receive Date: 20121015
  Receipt Date: 20121116
  Transmission Date: 20130627
  Serious: Yes (Hospitalization, Other)
  Sender: FDA-Public Use
  Company Number: CA-ROCHE-1140034

PATIENT
  Age: 81 None
  Sex: Female
  Weight: 70.37 kg

DRUGS (7)
  1. RITUXIMAB [Suspect]
     Indication: RHEUMATOID ARTHRITIS
     Route: 042
     Dates: start: 20091123
  2. RITUXIMAB [Suspect]
     Route: 042
     Dates: start: 20111107
  3. DETROL [Concomitant]
  4. FOSAMAX [Concomitant]
  5. VITAMIN D [Concomitant]
  6. FOLIC ACID [Concomitant]
  7. METHOTREXATE [Concomitant]

REACTIONS (4)
  - Upper limb fracture [Not Recovered/Not Resolved]
  - Fall [Unknown]
  - Urinary tract infection [Not Recovered/Not Resolved]
  - Epistaxis [Recovered/Resolved]
